FAERS Safety Report 5885429-7 (Version None)
Quarter: 2008Q3

REPORT INFORMATION
  Report Type: 
  Country: None (occurrence: None)
  Receive Date: 20080916
  Receipt Date: 20080902
  Transmission Date: 20090109
  Serious: Yes (Other)
  Sender: FDA-Public Use
  Company Number: US-ELI_LILLY_AND_COMPANY-US200809000344

PATIENT
  Sex: Male

DRUGS (4)
  1. STRATTERA [Suspect]
     Dosage: 25 MG, UNK
     Dates: start: 20080801, end: 20080821
  2. STRATTERA [Suspect]
     Dosage: 18 MG, UNK
     Dates: start: 20080728, end: 20080801
  3. STRATTERA [Suspect]
     Dosage: 18 MG, UNK
     Dates: start: 20080501
  4. RISPERIDONE [Concomitant]
     Dosage: 1 MG, UNK

REACTIONS (8)
  - AGGRESSION [None]
  - ANOREXIA [None]
  - HOSTILITY [None]
  - INSOMNIA [None]
  - INTENTIONAL SELF-INJURY [None]
  - PHOTOPHOBIA [None]
  - PSYCHOMOTOR HYPERACTIVITY [None]
  - SCREAMING [None]
